FAERS Safety Report 8081583-X (Version None)
Quarter: 2012Q1

REPORT INFORMATION
  Report Type: 
  Country: None (occurrence: None)
  Receive Date: 20120130
  Receipt Date: 20120123
  Transmission Date: 20120608
  Serious: Yes (Hospitalization)
  Sender: FDA-Public Use
  Company Number: JP-ROCHE-1013165

PATIENT
  Age: 31 Year
  Sex: Female

DRUGS (22)
  1. MYCOPHENOLATE MOFETIL (CELLCEPT) [Suspect]
     Route: 048
     Dates: start: 20080826
  2. TACROLIMUS [Suspect]
     Route: 048
     Dates: start: 20081017, end: 20081105
  3. SIMULECT [Concomitant]
     Indication: PROPHYLAXIS AGAINST TRANSPLANT REJECTION
     Route: 042
     Dates: start: 20071220, end: 20071220
  4. LANTUS [Concomitant]
     Route: 058
  5. MYCOPHENOLATE MOFETIL (CELLCEPT) [Suspect]
     Route: 048
  6. TACROLIMUS [Suspect]
     Dosage: 3-10MG/DAY
     Route: 048
     Dates: start: 20071223
  7. TACROLIMUS [Suspect]
     Route: 048
     Dates: start: 20081106
  8. SOLU-MEDROL [Concomitant]
     Indication: PROPHYLAXIS AGAINST TRANSPLANT REJECTION
     Route: 042
     Dates: start: 20071220, end: 20071220
  9. TACROLIMUS [Suspect]
     Indication: PROPHYLAXIS AGAINST TRANSPLANT REJECTION
     Dosage: 3-10MG/DAY
     Route: 048
     Dates: start: 20071215, end: 20071220
  10. TACROLIMUS [Suspect]
     Route: 042
     Dates: start: 20071221, end: 20071222
  11. PREDNISOLONE [Suspect]
     Indication: PROPHYLAXIS AGAINST TRANSPLANT REJECTION
     Route: 048
     Dates: start: 20071227
  12. SIMULECT [Concomitant]
     Route: 042
     Dates: start: 20071224, end: 20071224
  13. MYCOPHENOLATE MOFETIL (CELLCEPT) [Suspect]
     Indication: PROPHYLAXIS AGAINST TRANSPLANT REJECTION
     Route: 048
     Dates: start: 20071221, end: 20080212
  14. LEVEMIR [Concomitant]
     Indication: TYPE 1 DIABETES MELLITUS
     Dosage: 15-24U/DAY
     Route: 058
     Dates: start: 20080204
  15. MYCOPHENOLATE MOFETIL (CELLCEPT) [Suspect]
     Route: 048
     Dates: start: 20080213, end: 20080825
  16. NOVOLIN N [Concomitant]
     Indication: TYPE 1 DIABETES MELLITUS
     Dosage: 16-50U/DAY
     Route: 058
     Dates: start: 20071218, end: 20080114
  17. RITUXAN [Concomitant]
     Indication: PANCREAS TRANSPLANT REJECTION
     Dosage: DOSAGE IS UNCERTAIN.
     Route: 042
     Dates: start: 20100701
  18. TACROLIMUS [Suspect]
     Route: 048
     Dates: end: 20080805
  19. TACROLIMUS [Suspect]
     Route: 048
     Dates: start: 20080806, end: 20081016
  20. INSULIN [Concomitant]
     Indication: TYPE 1 DIABETES MELLITUS
     Dosage: 40-50IU
     Route: 058
  21. NOVOLIN R [Concomitant]
     Indication: TYPE 1 DIABETES MELLITUS
     Route: 058
     Dates: start: 20071221, end: 20071227
  22. NOVORAPID [Concomitant]
     Indication: TYPE 1 DIABETES MELLITUS
     Dosage: 10-45U/DAY
     Route: 058
     Dates: start: 20080115

REACTIONS (2)
  - ENTEROCOLITIS [None]
  - DIARRHOEA [None]
